FAERS Safety Report 4836663-6 (Version None)
Quarter: 2005Q4

REPORT INFORMATION
  Report Type: 
  Country: None (occurrence: None)
  Receive Date: 20051121
  Receipt Date: 20051101
  Transmission Date: 20060501
  Serious: Yes (Life-Threatening, Other)
  Sender: FDA-Public Use
  Company Number: TW-2005-021144

PATIENT
  Age: 74 Year
  Sex: Male
  Weight: 85 kg

DRUGS (2)
  1. ULTRAVIST 370 [Suspect]
     Indication: COMPUTERISED TOMOGRAM ABDOMEN
     Dosage: , 1 DOSE, 200 ML/BOTTLE, INTRAVENOUS
     Route: 042
     Dates: start: 20051011, end: 20051011
  2. BETA BLOCKING AGENTS [Concomitant]

REACTIONS (7)
  - APALLIC SYNDROME [None]
  - BLOOD PRESSURE IMMEASURABLE [None]
  - BRADYCARDIA [None]
  - CONVULSION [None]
  - HYPOTENSION [None]
  - LOSS OF CONSCIOUSNESS [None]
  - VOMITING [None]
